FAERS Safety Report 4462826-8 (Version None)
Quarter: 2004Q3

REPORT INFORMATION
  Report Type: 
  Country: None (occurrence: None)
  Receive Date: 20040927
  Receipt Date: 20040920
  Transmission Date: 20050211
  Serious: Yes (Hospitalization)
  Sender: FDA-Public Use
  Company Number: 2004-09-1171

PATIENT
  Age: 64 Year
  Sex: Male

DRUGS (2)
  1. REBETOL [Suspect]
     Dosage: 800 MCG QD ORAL
     Route: 048
  2. PEGASYS [Suspect]
     Dosage: 1  CC QWK

REACTIONS (6)
  - AFFECT LABILITY [None]
  - DEPRESSION [None]
  - DIARRHOEA [None]
  - INTESTINAL OBSTRUCTION [None]
  - RASH [None]
  - SLUGGISHNESS [None]
